FAERS Safety Report 4783567-3 (Version None)
Quarter: 2005Q3

REPORT INFORMATION
  Report Type: 
  Country: None (occurrence: None)
  Receive Date: 20050929
  Receipt Date: 20050919
  Transmission Date: 20060218
  Serious: Yes (Other)
  Sender: FDA-Public Use
  Company Number: FR-JNJFOC-20050904906

PATIENT
  Sex: Male

DRUGS (1)
  1. RISPERDAL CONSTA [Suspect]
     Dosage: DRUG TEMPORARILY HELD
     Route: 030
     Dates: start: 20050606, end: 20050831

REACTIONS (1)
  - PITUITARY TUMOUR BENIGN [None]
